FAERS Safety Report 7802356-6 (Version None)
Quarter: 2011Q4

REPORT INFORMATION
  Report Type: 
  Country: None (occurrence: None)
  Receive Date: 20111005
  Receipt Date: 20110922
  Transmission Date: 20120403
  Serious: Yes (Life-Threatening)
  Sender: FDA-Public Use
  Company Number: 1052235

PATIENT
  Age: 74 Year
  Sex: Male

DRUGS (12)
  1. GLYBURIDE [Concomitant]
  2. TYLENOL W/ CODEINE NO. 3 [Concomitant]
  3. FENTANYL CITRATE [Suspect]
     Indication: PRODUCT USED FOR UNKNOWN INDICATION
     Dosage: 250
  4. CEFAZOLIN [Concomitant]
  5. RANITIDINE [Concomitant]
  6. SPIRONOLACTONE [Concomitant]
  7. ROCURONIUM BROMIDE [Suspect]
     Indication: PRODUCT USED FOR UNKNOWN INDICATION
  8. PROPOFOL [Suspect]
     Indication: PRODUCT USED FOR UNKNOWN INDICATION
     Dosage: 50
  9. SEVOFLURANE [Suspect]
     Indication: PRODUCT USED FOR UNKNOWN INDICATION
  10. CALCIUM CARBONATE [Concomitant]
  11. METOPROLOL TARTRATE [Concomitant]
  12. DOCUSATE [Concomitant]

REACTIONS (1)
  - ENCEPHALOPATHY [None]
